FAERS Safety Report 21857260 (Version 1)
Quarter: 2023Q1

REPORT INFORMATION
  Report Type: Spontaneous
  Country: US (occurrence: US)
  Receive Date: 20230113
  Receipt Date: 20230113
  Transmission Date: 20230417
  Serious: Yes (Other)
  Sender: FDA-Public Use
  Company Number: US-CHIESI-2022CHF02878

PATIENT
  Age: 25 Week

DRUGS (1)
  1. CUROSURF [Suspect]
     Active Substance: PORACTANT ALFA
     Indication: Neonatal respiratory distress syndrome
     Dosage: 2.5 MILLIGRAM/KILOGRAM
     Route: 007
     Dates: start: 20220603

REACTIONS (4)
  - Endotracheal intubation complication [Unknown]
  - Endotracheal intubation complication [Unknown]
  - Liquid product physical issue [Recovered/Resolved]
  - Product colour issue [Recovered/Resolved]

NARRATIVE: CASE EVENT DATE: 20220603
